FAERS Safety Report 4286281-6 (Version None)
Quarter: 2004Q1

REPORT INFORMATION
  Report Type: 
  Country: None (occurrence: None)
  Receive Date: 20040129
  Receipt Date: 20030604
  Transmission Date: 20041129
  Serious: Yes (Hospitalization)
  Sender: FDA-Public Use
  Company Number: A001-002-005653

PATIENT
  Age: 81 Year
  Sex: Female
  Weight: 52 kg

DRUGS (5)
  1. ARICEPT [Suspect]
     Indication: DEMENTIA ALZHEIMER'S TYPE
     Dosage: 5 MG, 1 IN 1 D, ORAL; 10 MG, 1 IN 1 D, ORAL;15 MG, ORAL; 5 MG, 1 IN 1 D, ORAL
     Route: 048
     Dates: start: 20000101
  2. ARICEPT [Suspect]
     Indication: DEMENTIA ALZHEIMER'S TYPE
     Dosage: 5 MG, 1 IN 1 D, ORAL; 10 MG, 1 IN 1 D, ORAL;15 MG, ORAL; 5 MG, 1 IN 1 D, ORAL
     Route: 048
     Dates: start: 20030519
  3. PLAVIX [Concomitant]
  4. CELEXA [Concomitant]
  5. AMARYL [Concomitant]

REACTIONS (2)
  - AGGRESSION [None]
  - HYPERTENSION [None]
